FAERS Safety Report 17043285 (Version 2)
Quarter: 2019Q4

REPORT INFORMATION
  Report Type: Spontaneous
  Country: BR (occurrence: BR)
  Receive Date: 20191118
  Receipt Date: 20191227
  Transmission Date: 20200122
  Serious: Yes (Other)
  Sender: FDA-Public Use
  Company Number: BR-SA-2019SA304720

PATIENT
  Age: 62 Year
  Sex: Female
  Weight: 77 kg

DRUGS (7)
  1. ATROVENT [Concomitant]
     Active Substance: IPRATROPIUM BROMIDE
     Indication: ASTHMA
     Dosage: 2 PUFFS EVERY 12 HOURS
     Route: 048
  2. SALBUTAMOL [SALBUTAMOL SULFATE] [Concomitant]
     Active Substance: ALBUTEROL SULFATE
     Indication: ASTHMA
     Dosage: 4 PUFFS, EVERY 6 HOURS, IF INTENSE PAIN
     Route: 048
     Dates: start: 2017
  3. SYMBICORT [Concomitant]
     Active Substance: BUDESONIDE\FORMOTEROL FUMARATE DIHYDRATE
     Indication: ASTHMA
     Dosage: 1 PUFF EVERY 12 HOURS, EVERY DAY
     Route: 048
     Dates: start: 2017
  4. SALBUTAMOL [Concomitant]
     Active Substance: ALBUTEROL
     Route: 065
  5. LANTUS [Suspect]
     Active Substance: INSULIN GLARGINE
     Indication: DIABETES MELLITUS
     Dosage: 42 U, QD
     Route: 058
  6. HUMALOG [Concomitant]
     Active Substance: INSULIN LISPRO
     Indication: DIABETES MELLITUS
     Dosage: 3 TIMES DAILY, IN THE MORNING AND AFTERNOON
     Route: 058
  7. ATROVENT [Concomitant]
     Active Substance: IPRATROPIUM BROMIDE
     Route: 065

REACTIONS (8)
  - Asthma [Unknown]
  - Insomnia [Unknown]
  - Blindness [Unknown]
  - Blood glucose increased [Unknown]
  - Expired product administered [Unknown]
  - Nasal obstruction [Recovered/Resolved]
  - Cough [Not Recovered/Not Resolved]
  - Influenza [Recovered/Resolved]

NARRATIVE: CASE EVENT DATE: 2017
